FAERS Safety Report 7910325-0 (Version None)
Quarter: 2011Q4

REPORT INFORMATION
  Report Type: 
  Country: None (occurrence: None)
  Receive Date: 20111111
  Receipt Date: 20111031
  Transmission Date: 20120403
  Serious: Yes (Hospitalization)
  Sender: FDA-Public Use
  Company Number: DE-ROCHE-1008196

PATIENT
  Sex: Male
  Weight: 73 kg

DRUGS (4)
  1. MABTHERA [Suspect]
     Indication: B-CELL LYMPHOMA
     Route: 042
     Dates: start: 20110927, end: 20111025
  2. CAPTOPRIL [Concomitant]
  3. SIMVASTATIN [Concomitant]
  4. ATACAND HCT [Concomitant]
     Dosage: 8/12.5 MG

REACTIONS (1)
  - VERTIGO [None]
